FAERS Safety Report 24305888 (Version 1)
Quarter: 2024Q3

REPORT INFORMATION
  Report Type: Report from Study
  Country: US (occurrence: US)
  Receive Date: 20240911
  Receipt Date: 20240911
  Transmission Date: 20241017
  Serious: Yes (Other)
  Sender: RANBAXY
  Company Number: US-SUN PHARMACEUTICAL INDUSTRIES LTD-2024R1-467054

PATIENT
  Age: 58 Year
  Sex: Female

DRUGS (3)
  1. CLINDAMYCIN [Suspect]
     Active Substance: CLINDAMYCIN
     Indication: Hidradenitis
     Dosage: 300 MILLIGRAM, QD
     Route: 065
  2. DAPSONE [Suspect]
     Active Substance: DAPSONE
     Indication: Hidradenitis
     Dosage: 25-50 MG/DAY
     Route: 048
  3. RIFAMPIN [Interacting]
     Active Substance: RIFAMPIN
     Indication: Hidradenitis
     Dosage: 150 MILLIGRAM, QD
     Route: 065

REACTIONS (2)
  - Therapy partial responder [Unknown]
  - Drug interaction [Unknown]
